FAERS Safety Report 8465925 (Version 2)
Quarter: 2012Q4

REPORT INFORMATION
  Report Type: 
  Country: IN (occurrence: IN)
  Receive Date: 20120319
  Receipt Date: 20121016
  Transmission Date: 20130627
  Serious: Yes (Life-Threatening, Hospitalization)
  Sender: FDA-Public Use
  Company Number: PHHY2012IN023374

PATIENT
  Sex: Male

DRUGS (3)
  1. ONBREZ [Suspect]
     Indication: CHRONIC OBSTRUCTIVE PULMONARY DISEASE
     Dosage: 150 ug, UNK
     Dates: start: 20110324
  2. ONBREZ [Suspect]
     Dosage: 300 ug, UNK
  3. DUOLIN [Concomitant]

REACTIONS (1)
  - Oxygen consumption decreased [Unknown]
